FAERS Safety Report 9854767 (Version 1)
Quarter: 2014Q1

REPORT INFORMATION
  Report Type: Spontaneous
  Country: US (occurrence: US)
  Receive Date: 20140130
  Receipt Date: 20140130
  Transmission Date: 20141002
  Serious: No
  Sender: FDA-Public Use
  Company Number: US-PFIZER INC-2014025529

PATIENT
  Age: 63 Year
  Sex: Female

DRUGS (1)
  1. BOSULIF [Suspect]
     Indication: METASTATIC NEOPLASM
     Dosage: 500 MG, UNK
     Dates: start: 20130115

REACTIONS (1)
  - Alopecia [Unknown]
